FAERS Safety Report 14384862 (Version 6)
Quarter: 2018Q1

REPORT INFORMATION
  Report Type: Spontaneous
  Country: PT (occurrence: PT)
  Receive Date: 20180115
  Receipt Date: 20180220
  Transmission Date: 20180509
  Serious: Yes (Hospitalization)
  Sender: FDA-Public Use
  Company Number: PT-009507513-1801PRT004860

PATIENT
  Age: 45 Year
  Sex: Female

DRUGS (1)
  1. NEOCLARITYN [Suspect]
     Active Substance: DESLORATADINE
     Indication: RHINITIS ALLERGIC
     Dosage: UNK
     Route: 065

REACTIONS (1)
  - Nasal septum perforation [Recovered/Resolved]

NARRATIVE: CASE EVENT DATE: 19970101
